FAERS Safety Report 24449044 (Version 1)
Quarter: 2024Q4

REPORT INFORMATION
  Report Type: Report from Study
  Country: US (occurrence: US)
  Receive Date: 20241017
  Receipt Date: 20241017
  Transmission Date: 20250115
  Serious: Yes (Hospitalization)
  Sender: ACCORD
  Company Number: US-Accord-451281

PATIENT
  Sex: Male

DRUGS (2)
  1. CLOZAPINE [Suspect]
     Active Substance: CLOZAPINE
     Indication: Bipolar disorder
     Dosage: 100MG, DAILY AT BEDTIME, HALF TABLET DAILY IN THE MORNING
  2. CLOZAPINE [Suspect]
     Active Substance: CLOZAPINE
     Indication: Bipolar disorder
     Dosage: AT NOON 12.5MG, ONE TWICE DAILY AS NEEDED AND ONE TABLET EVERY DAY IN THE MORNING AND AT NOON

REACTIONS (3)
  - Mood swings [Unknown]
  - Abnormal behaviour [Unknown]
  - Condition aggravated [Unknown]
